FAERS Safety Report 17038462 (Version 2)
Quarter: 2020Q1

REPORT INFORMATION
  Report Type: Spontaneous
  Country: FR (occurrence: FR)
  Receive Date: 20191115
  Receipt Date: 20200207
  Transmission Date: 20200409
  Serious: Yes (Hospitalization)
  Sender: FDA-Public Use
  Company Number: FR-IPSEN BIOPHARMACEUTICALS, INC.-2019-21563

PATIENT
  Age: 35 Year
  Sex: Female
  Weight: 48 kg

DRUGS (4)
  1. XATRAL [Concomitant]
     Active Substance: ALFUZOSIN
     Dates: start: 2018
  2. PREGABALIN. [Concomitant]
     Active Substance: PREGABALIN
     Dates: start: 2018
  3. DYSPORT [Suspect]
     Active Substance: ABOBOTULINUMTOXINA
     Indication: MUSCLE SPASTICITY
     Dosage: 1200 UNITS
     Route: 030
     Dates: start: 20190626, end: 20190626
  4. BACLOFEN. [Concomitant]
     Active Substance: BACLOFEN
     Dosage: 0.5 TABLET PER DAY
     Dates: start: 2018

REACTIONS (9)
  - Asthmatic crisis [Recovered/Resolved]
  - Vision blurred [Recovered/Resolved]
  - Dysphonia [Recovered/Resolved]
  - Vocal cord paralysis [Recovered/Resolved]
  - Visual acuity reduced [Recovered/Resolved]
  - Facial paralysis [Recovered/Resolved]
  - Eyelid function disorder [Recovered/Resolved]
  - Dyspnoea [Recovered/Resolved]
  - Dysphagia [Recovered/Resolved]

NARRATIVE: CASE EVENT DATE: 20190706
